FAERS Safety Report 17575946 (Version 1)
Quarter: 2020Q1

REPORT INFORMATION
  Report Type: Spontaneous
  Country: US (occurrence: US)
  Receive Date: 20200324
  Receipt Date: 20200324
  Transmission Date: 20200409
  Serious: No
  Sender: FDA-Public Use
  Company Number: US-VERTEX PHARMACEUTICALS-2020-006026

PATIENT
  Sex: Male
  Weight: 20 kg

DRUGS (12)
  1. POTASSIUM ACETATE. [Concomitant]
     Active Substance: POTASSIUM ACETATE
     Dosage: 2 MEQ/ML VIAL
  2. HYDROCORTISONE AND ACETIC ACID [Concomitant]
     Active Substance: ACETIC ACID\HYDROCORTISONE
  3. MEGACE ES [Concomitant]
     Active Substance: MEGESTROL ACETATE
     Dosage: 625MG/5ML
     Route: 048
  4. PULMOZYME [Concomitant]
     Active Substance: DORNASE ALFA
     Dosage: 1 MG/ML SOLUTION
  5. XOPENEX [Concomitant]
     Active Substance: LEVALBUTEROL HYDROCHLORIDE
     Dosage: 0.31MG/3ML VIAL
  6. PULMICORT FLEXHALER [Concomitant]
     Active Substance: BUDESONIDE
     Dosage: 0.25MG/2ML
  7. CULTURELLE FOR KIDS [INULIN;LACTOBACILLUS RHAMNOSUS] [Concomitant]
     Dosage: 10B-200 MG CAP SPRINK
  8. ORKAMBI [Suspect]
     Active Substance: IVACAFTOR\LUMACAFTOR
     Indication: CYSTIC FIBROSIS
     Dosage: 2 TABLET, BID
     Route: 048
     Dates: start: 20170701
  9. ZYRTEC [Concomitant]
     Active Substance: CETIRIZINE HYDROCHLORIDE
     Dosage: 10 MG TABLET
  10. FLOVENT [Concomitant]
     Active Substance: FLUTICASONE PROPIONATE
     Dosage: 44 MCG
  11. CREON [Concomitant]
     Active Substance: PANCRELIPASE AMYLASE\PANCRELIPASE LIPASE\PANCRELIPASE PROTEASE
     Dosage: 24-76-120K CAPSULE
  12. FLUORIDEX [Concomitant]
     Active Substance: STANNOUS FLUORIDE

REACTIONS (1)
  - Infective pulmonary exacerbation of cystic fibrosis [Unknown]
